FAERS Safety Report 16016733 (Version 3)
Quarter: 2019Q2

REPORT INFORMATION
  Report Type: Spontaneous
  Country: AU (occurrence: AU)
  Receive Date: 20190228
  Receipt Date: 20190628
  Transmission Date: 20190711
  Serious: Yes (Hospitalization, Other)
  Sender: FDA-Public Use
  Company Number: AU-009507513-1902AUS007925

PATIENT
  Age: 61 Year
  Sex: Male

DRUGS (9)
  1. EZETROL [Suspect]
     Active Substance: EZETIMIBE
     Route: 048
  2. FENOFIBRATE. [Suspect]
     Active Substance: FENOFIBRATE
  3. MONODUR [Suspect]
     Active Substance: ISOSORBIDE MONONITRATE
     Dosage: 120 MILLIGRAM, QD
  4. CLOPIDOGREL [Suspect]
     Active Substance: CLOPIDOGREL BISULFATE
     Dosage: 75 MILLIGRAM
  5. IKOREL [Suspect]
     Active Substance: NICORANDIL
     Dosage: 40 MILLIGRAM(ALSO REPORTED AS 20 MILLIGRAM, TWICE A DAY (BID))
  6. METOPROLOL. [Suspect]
     Active Substance: METOPROLOL
     Dosage: 100 MILLIGRAM(ALSO REPORTED AS 50 MILLIGRAM, TWICE A DAY(BID) )
  7. COVERSYL (PERINDOPRIL ARGININE) [Suspect]
     Active Substance: PERINDOPRIL ARGININE
     Dosage: 10 MILLIGRAM
  8. NIFEDIPINE. [Suspect]
     Active Substance: NIFEDIPINE
     Dosage: 60 MILLIGRAM, QD
  9. ASPIRIN. [Suspect]
     Active Substance: ASPIRIN
     Dosage: 100 MILLIGRAM

REACTIONS (11)
  - Lymphadenopathy [Unknown]
  - Portal hypertension [Unknown]
  - Bone lesion [Unknown]
  - Urticaria pigmentosa [Unknown]
  - Splenomegaly [Unknown]
  - Hepatomegaly [Unknown]
  - Kounis syndrome [Unknown]
  - Systemic mastocytosis [Unknown]
  - Arteriosclerosis [Unknown]
  - Rectal haemorrhage [Unknown]
  - Cardiac cirrhosis [Unknown]

NARRATIVE: CASE EVENT DATE: 20171130
